FAERS Safety Report 9119135 (Version 2)
Quarter: 2013Q1

REPORT INFORMATION
  Report Type: Spontaneous
  Country: US (occurrence: US)
  Receive Date: 20130226
  Receipt Date: 20130327
  Transmission Date: 20140127
  Serious: No
  Sender: FDA-Public Use
  Company Number: US-BIOGENIDEC-2013BI016605

PATIENT
  Sex: Female

DRUGS (1)
  1. TYSABRI [Suspect]
     Indication: MULTIPLE SCLEROSIS
     Route: 042
     Dates: start: 20100901

REACTIONS (12)
  - Secondary progressive multiple sclerosis [Unknown]
  - Muscular weakness [Unknown]
  - Gait disturbance [Unknown]
  - Trigeminal neuralgia [Unknown]
  - Weight increased [Unknown]
  - Cough [Unknown]
  - Pollakiuria [Unknown]
  - Micturition urgency [Unknown]
  - Urinary incontinence [Unknown]
  - Decreased vibratory sense [Unknown]
  - Drug ineffective [Unknown]
  - Multiple sclerosis [Unknown]
